FAERS Safety Report 8879018 (Version 1)
Quarter: 2012Q4

REPORT INFORMATION
  Report Type: 
  Country: US (occurrence: US)
  Receive Date: 20121026
  Receipt Date: 20121026
  Transmission Date: 20130627
  Serious: Yes (Death, Hospitalization, Other)
  Sender: FDA-Public Use
  Company Number: US-JNJFOC-20121014983

PATIENT
  Sex: Female

DRUGS (1)
  1. XARELTO [Suspect]
     Indication: PRODUCT USED FOR UNKNOWN INDICATION
     Route: 048

REACTIONS (4)
  - Respiratory failure [Unknown]
  - Death [Fatal]
  - Haematocrit decreased [Unknown]
  - Anaemia [Unknown]
